FAERS Safety Report 9411676 (Version 1)
Quarter: 2013Q3

REPORT INFORMATION
  Report Type: Spontaneous
  Country: US (occurrence: None)
  Receive Date: 20130719
  Receipt Date: 20130719
  Transmission Date: 20140515
  Serious: Yes (Life-Threatening, Other)
  Sender: FDA-Public Use
  Company Number: None

PATIENT
  Age: 5 Year
  Sex: Female
  Weight: 35 kg

DRUGS (3)
  1. TOPAMAX [Suspect]
     Dosage: 1/2 TAB BID PO MG -G TUBE
     Route: 048
  2. TOPAMAX [Suspect]
     Indication: CONVULSION
     Dosage: 1/2 TAB BID PO MG -G TUBE
     Route: 048
  3. TEGRETOL [Suspect]
     Indication: CONVULSION
     Dosage: 15 ML BID G-TUBE

REACTIONS (3)
  - Syncope [None]
  - Convulsion [None]
  - Ataxia [None]
